FAERS Safety Report 8111736-3 (Version None)
Quarter: 2012Q1

REPORT INFORMATION
  Report Type: 
  Country: None (occurrence: None)
  Receive Date: 20120203
  Receipt Date: 20120120
  Transmission Date: 20120608
  Serious: Yes (Other)
  Sender: FDA-Public Use
  Company Number: CZ-RANBAXY-2012R1-52143

PATIENT
  Age: 23 Year
  Sex: Male

DRUGS (6)
  1. RISPERIDONE [Suspect]
     Indication: SCHIZOPHRENIFORM DISORDER
     Route: 065
  2. PROMETHAZINE [Concomitant]
     Indication: SCHIZOPHRENIFORM DISORDER
     Route: 065
  3. LEVOMEPROMAZINE [Concomitant]
     Indication: SCHIZOPHRENIFORM DISORDER
     Route: 065
  4. BIPERIDEN HYDROCHLORIDE TAB [Concomitant]
     Indication: PRODUCT USED FOR UNKNOWN INDICATION
     Route: 065
  5. ZUCLOPENTHIXOL [Suspect]
     Indication: SCHIZOPHRENIFORM DISORDER
     Dosage: UNK
     Route: 065
  6. RISPERIDONE [Suspect]
     Dosage: 4MG DAILY
     Route: 048

REACTIONS (4)
  - EXTRAPYRAMIDAL DISORDER [None]
  - CONDITION AGGRAVATED [None]
  - ANXIETY [None]
  - PSYCHOTIC DISORDER [None]
